FAERS Safety Report 20758745 (Version 1)
Quarter: 2022Q2

REPORT INFORMATION
  Report Type: Spontaneous
  Country: US (occurrence: US)
  Receive Date: 20220427
  Receipt Date: 20220427
  Transmission Date: 20220720
  Serious: No
  Sender: FDA-Public Use
  Company Number: US-PERRIGO-22US000667

PATIENT
  Age: 79 Year
  Sex: Female
  Weight: 90.703 kg

DRUGS (5)
  1. FAMOTIDINE [Suspect]
     Active Substance: FAMOTIDINE
     Indication: Abdominal pain upper
     Dosage: 10 MG, BID
     Route: 048
     Dates: start: 20220114, end: 20220117
  2. FAMOTIDINE [Suspect]
     Active Substance: FAMOTIDINE
     Dosage: 1 ADDITIONAL TABLET, SINGLE
     Route: 048
     Dates: start: 20220117, end: 20220117
  3. LOSARTAN [Concomitant]
     Active Substance: LOSARTAN
     Indication: Hypertension
     Dosage: UNK
     Route: 065
     Dates: start: 2021
  4. CLOPIDOGREL [Concomitant]
     Active Substance: CLOPIDOGREL BISULFATE
     Indication: Anticoagulant therapy
     Dosage: 0.5 TAB
     Route: 065
     Dates: start: 20220103
  5. ATORVASTATIN [Concomitant]
     Active Substance: ATORVASTATIN
     Indication: Blood cholesterol increased
     Dosage: UNK
     Route: 065
     Dates: start: 20220103

REACTIONS (2)
  - Fatigue [Recovering/Resolving]
  - Off label use [Recovered/Resolved]

NARRATIVE: CASE EVENT DATE: 20220117
